FAERS Safety Report 10948813 (Version 1)
Quarter: 2015Q1

REPORT INFORMATION
  Report Type: Spontaneous
  Country: US (occurrence: None)
  Receive Date: 20150323
  Receipt Date: 20150323
  Transmission Date: 20150721
  Serious: No
  Sender: FDA-Public Use
  Company Number: None

PATIENT
  Sex: Female

DRUGS (27)
  1. TASIGNA [Suspect]
     Active Substance: NILOTINIB
     Indication: CHRONIC MYELOID LEUKAEMIA
     Route: 048
     Dates: start: 2009
  2. GABAPENTIN. [Concomitant]
     Active Substance: GABAPENTIN
  3. SURCRALFATE [Concomitant]
  4. HYOSCYAMINE [Concomitant]
     Active Substance: HYOSCYAMINE
  5. OMEPRAZOLE. [Concomitant]
     Active Substance: OMEPRAZOLE
  6. TRAMANDLONE/ACETAPRIL [Concomitant]
  7. FUROSEMIDE. [Concomitant]
     Active Substance: FUROSEMIDE
  8. SENNA [Concomitant]
     Active Substance: SENNA LEAF\SENNOSIDES\SENNOSIDES A AND B
  9. VOLTAREN [Concomitant]
     Active Substance: DICLOFENAC SODIUM
  10. DIAZEPAM. [Concomitant]
     Active Substance: DIAZEPAM
  11. KETOROLAC [Concomitant]
     Active Substance: KETOROLAC\KETOROLAC TROMETHAMINE
  12. AMITCA [Concomitant]
  13. HYDROXYUREA. [Concomitant]
     Active Substance: HYDROXYUREA
  14. PROCTOCORT [Concomitant]
     Active Substance: HYDROCORTISONE
  15. VITAMIN B12 [Concomitant]
     Active Substance: CYANOCOBALAMIN
  16. CARAFATE [Concomitant]
     Active Substance: SUCRALFATE
  17. CARAFATE [Concomitant]
     Active Substance: SUCRALFATE
  18. SIMVASTATIN. [Concomitant]
     Active Substance: SIMVASTATIN
  19. FUROSEMIDE. [Concomitant]
     Active Substance: FUROSEMIDE
  20. POTASSUIM [Concomitant]
  21. KLOR-CON [Concomitant]
     Active Substance: POTASSIUM CHLORIDE
  22. ALLOPURINOL. [Concomitant]
     Active Substance: ALLOPURINOL
  23. ACYCLOVIR. [Concomitant]
     Active Substance: ACYCLOVIR
  24. SPIRONONACT [Concomitant]
  25. TASIGNA [Concomitant]
     Active Substance: NILOTINIB
  26. LYRICA [Concomitant]
     Active Substance: PREGABALIN
  27. GABAPENTIN. [Concomitant]
     Active Substance: GABAPENTIN

REACTIONS (2)
  - Fall [None]
  - Memory impairment [None]
